FAERS Safety Report 9252136 (Version 2)
Quarter: 2014Q1

REPORT INFORMATION
  Report Type: Spontaneous
  Country: US (occurrence: None)
  Receive Date: 20130305
  Receipt Date: 20140306
  Transmission Date: 20141002
  Serious: Yes (Hospitalization, Other)
  Sender: FDA-Public Use
  Company Number: 163-21880-12083380

PATIENT
  Age: 79 Year
  Sex: Male
  Weight: 89.7 kg

DRUGS (8)
  1. REVLIMID (LENALIDOMIDE) (15 MILLIGRAM, CAPSULES) [Suspect]
     Indication: PLASMA CELL MYELOMA
     Dosage: 21 IN 28 D
     Route: 048
     Dates: start: 20100818
  2. ECOTRIN (ACETYLSALICYLIC ACID) [Concomitant]
  3. COUMADIN (WARFARIN SODIUM) [Concomitant]
  4. BETA BLOCKER (BETA BLOCKER AGENTS) [Concomitant]
  5. NITROGLYCERINE (GLYCERYL TRINITRATE) [Concomitant]
  6. DECADRON (DEXAMETHASONE) [Concomitant]
  7. MELPHALAN [Concomitant]
  8. PAMIDRONATE (PAMIDRONATE SODIUM) [Concomitant]

REACTIONS (4)
  - Myocardial infarction [None]
  - Cerebrovascular accident [None]
  - Acute myocardial infarction [None]
  - Ischaemic stroke [None]
